FAERS Safety Report 17082930 (Version 1)
Quarter: 2019Q4

REPORT INFORMATION
  Report Type: Spontaneous
  Country: GB (occurrence: GB)
  Receive Date: 20191127
  Receipt Date: 20191127
  Transmission Date: 20200122
  Serious: Yes (Death)
  Sender: FDA-Public Use
  Company Number: GB-ABBVIE-19K-167-3172543-00

PATIENT
  Age: 65 Year
  Sex: Male

DRUGS (4)
  1. KETOCONAZOLE. [Suspect]
     Active Substance: KETOCONAZOLE
     Indication: PRODUCT USED FOR UNKNOWN INDICATION
     Dosage: SPO 2% 1 MY
     Route: 065
  2. PREZISTA [Suspect]
     Active Substance: DARUNAVIR ETHANOLATE
     Indication: PRODUCT USED FOR UNKNOWN INDICATION
     Route: 065
  3. NORVIR [Suspect]
     Active Substance: RITONAVIR
     Indication: PRODUCT USED FOR UNKNOWN INDICATION
     Route: 048
  4. INTELENCE [Suspect]
     Active Substance: ETRAVIRINE
     Indication: PRODUCT USED FOR UNKNOWN INDICATION
     Dosage: TAB 60
     Route: 065

REACTIONS (1)
  - Death [Fatal]

NARRATIVE: CASE EVENT DATE: 20191120
